FAERS Safety Report 10921343 (Version 1)
Quarter: 2015Q1

REPORT INFORMATION
  Report Type: Spontaneous
  Country: US (occurrence: None)
  Receive Date: 20150313
  Receipt Date: 20150313
  Transmission Date: 20150721
  Serious: Yes (Hospitalization)
  Sender: FDA-Public Use
  Company Number: None

PATIENT
  Age: 33 Year
  Sex: Male
  Weight: 76.36 kg

DRUGS (5)
  1. CYCLOPHOSPHAMIDE. [Suspect]
     Active Substance: CYCLOPHOSPHAMIDE
     Dates: start: 20150217
  2. CYTARABINE. [Suspect]
     Active Substance: CYTARABINE
     Dates: start: 20150227
  3. ONCASPAR [Suspect]
     Active Substance: PEGASPARGASE
     Dates: start: 20150303
  4. MERCAPTOPURINE. [Suspect]
     Active Substance: MERCAPTOPURINE
     Dates: start: 20150302
  5. METHOTREXATE [Suspect]
     Active Substance: METHOTREXATE
     Dates: start: 20150224

REACTIONS (4)
  - Hypotension [None]
  - Thrombocytopenia [None]
  - Malaise [None]
  - Syncope [None]

NARRATIVE: CASE EVENT DATE: 20150310
